FAERS Safety Report 8904199 (Version 1)
Quarter: 2012Q4

REPORT INFORMATION
  Report Type: 
  Country: US (occurrence: US)
  Receive Date: 20121112
  Receipt Date: 20121112
  Transmission Date: 20130627
  Serious: Yes (Hospitalization)
  Sender: FDA-Public Use
  Company Number: US-ASTRAZENECA-2012SE84310

PATIENT
  Age: 69 Year
  Sex: Male

DRUGS (2)
  1. TOPROL XL [Suspect]
     Route: 048
  2. PRO AIR [Concomitant]

REACTIONS (4)
  - Mass [Unknown]
  - Lung disorder [Unknown]
  - Dyspnoea exertional [Unknown]
  - Wheezing [Unknown]
